FAERS Safety Report 6749408-X (Version None)
Quarter: 2010Q2

REPORT INFORMATION
  Report Type: 
  Country: None (occurrence: None)
  Receive Date: 20100601
  Receipt Date: 20100524
  Transmission Date: 20101027
  Serious: Yes (Other)
  Sender: FDA-Public Use
  Company Number: DE-ROCHE-705268

PATIENT
  Age: 62 Year
  Sex: Female

DRUGS (3)
  1. RIBAVIRIN [Suspect]
     Dosage: DOSE: WEIGHT BASED
     Route: 065
     Dates: start: 20060901
  2. RIBAVIRIN [Suspect]
     Dosage: DOSE REDUCED FOR 3 WEEKS
     Route: 065
     Dates: end: 20070101
  3. PEGINTERFERON ALFA-2B [Suspect]
     Route: 065
     Dates: start: 20061001, end: 20070101

REACTIONS (4)
  - ANAEMIA [None]
  - JAUNDICE [None]
  - NO ADVERSE EVENT [None]
  - VIROLOGIC FAILURE [None]
